FAERS Safety Report 7006666-4 (Version None)
Quarter: 2010Q3

REPORT INFORMATION
  Report Type: 
  Country: None (occurrence: None)
  Receive Date: 20100921
  Receipt Date: 20100910
  Transmission Date: 20110219
  Serious: Yes (Other)
  Sender: FDA-Public Use
  Company Number: GB-NOVEN-10GB001380

PATIENT
  Age: 49 Year
  Sex: Female

DRUGS (5)
  1. PAROXETINE HCL [Suspect]
     Indication: DEPRESSION
     Dosage: UNK
     Route: 065
  2. CLOZAPINE [Suspect]
     Indication: SCHIZOPHRENIA
     Dosage: UNK
     Route: 065
     Dates: start: 20050207
  3. AMISULPRIDE [Suspect]
     Indication: SCHIZOPHRENIA
     Dosage: UNK
     Route: 065
  4. LAMOTRIGINE [Suspect]
     Indication: SCHIZOPHRENIA
     Dosage: UNK
     Route: 065
  5. RAMIPRIL [Suspect]
     Indication: BLOOD PRESSURE
     Dosage: UNK
     Route: 065

REACTIONS (2)
  - BREAST ABSCESS [None]
  - BREAST CANCER [None]
